FAERS Safety Report 9086636 (Version 1)
Quarter: 2013Q1

REPORT INFORMATION
  Report Type: Report from Study
  Country: US (occurrence: US)
  Receive Date: 20130130
  Receipt Date: 20130130
  Transmission Date: 20140127
  Serious: No
  Sender: FDA-Public Use
  Company Number: US-ABBOTT-12P-163-0979866-00

PATIENT
  Age: 48 Year
  Sex: Male

DRUGS (5)
  1. HUMIRA [Suspect]
     Indication: COLITIS ULCERATIVE
     Dates: start: 201207
  2. HUMIRA [Suspect]
     Indication: COLITIS
  3. ASACOL [Concomitant]
     Indication: COLITIS
  4. VALIUM [Concomitant]
     Indication: ANXIETY
  5. PREDNISONE [Concomitant]
     Indication: COLITIS
     Dosage: 10MG DAILY - TAPERING DOSE

REACTIONS (4)
  - Lethargy [Recovered/Resolved]
  - Injection site bruising [Not Recovered/Not Resolved]
  - Arthralgia [Not Recovered/Not Resolved]
  - Diarrhoea [Unknown]
